FAERS Safety Report 13393645 (Version 2)
Quarter: 2017Q2

REPORT INFORMATION
  Report Type: Spontaneous
  Country: US (occurrence: US)
  Receive Date: 20170331
  Receipt Date: 20170525
  Transmission Date: 20170830
  Serious: Yes (Hospitalization, Disabling, Other)
  Sender: FDA-Public Use
  Company Number: US-TEVA-754330USA

PATIENT
  Sex: Female

DRUGS (2)
  1. NEURONTIN [Concomitant]
     Active Substance: GABAPENTIN
     Dosage: AS NEEDED
  2. TRAZODONE [Suspect]
     Active Substance: TRAZODONE HYDROCHLORIDE
     Indication: SLEEP DISORDER
     Route: 065
     Dates: start: 201508, end: 201702

REACTIONS (17)
  - Meningitis viral [Recovered/Resolved]
  - Menorrhagia [Not Recovered/Not Resolved]
  - Nervous system disorder [Recovering/Resolving]
  - Muscular weakness [Recovered/Resolved]
  - Confusional state [Recovered/Resolved]
  - Dyspnoea [Recovered/Resolved]
  - Neck pain [Recovered/Resolved]
  - Restless legs syndrome [Not Recovered/Not Resolved]
  - Asthenia [Recovered/Resolved]
  - Product use in unapproved indication [Unknown]
  - Nervous system disorder [Recovering/Resolving]
  - Decreased appetite [Recovered/Resolved]
  - Disability [Recovered/Resolved]
  - Fatigue [Recovered/Resolved]
  - Headache [Recovered/Resolved]
  - Fall [Recovered/Resolved]
  - Anal incontinence [Unknown]

NARRATIVE: CASE EVENT DATE: 201508
